FAERS Safety Report 10561556 (Version 2)
Quarter: 2014Q4

REPORT INFORMATION
  Report Type: Spontaneous
  Country: MY (occurrence: MY)
  Receive Date: 20141103
  Receipt Date: 20141103
  Transmission Date: 20150529
  Serious: Yes (Hospitalization)
  Sender: FDA-Public Use
  Company Number: ALCN2014MY005765

PATIENT
  Age: 8 Month
  Sex: Female
  Weight: 8.6 kg

DRUGS (1)
  1. CYCLOGYL [Suspect]
     Active Substance: CYCLOPENTOLATE HYDROCHLORIDE
     Indication: PUPIL DILATION PROCEDURE
     Dosage: 3 GTT, UNK
     Route: 047
     Dates: start: 20130605, end: 20130605

REACTIONS (3)
  - Rash generalised [Recovered/Resolved]
  - Lacrimation increased [Recovered/Resolved]
  - Discomfort [Recovered/Resolved]

NARRATIVE: CASE EVENT DATE: 20130605
